FAERS Safety Report 5864193-1 (Version None)
Quarter: 2008Q3

REPORT INFORMATION
  Report Type: 
  Country: None (occurrence: None)
  Receive Date: 20080829
  Receipt Date: 20080822
  Transmission Date: 20090109
  Serious: Yes (Other)
  Sender: FDA-Public Use
  Company Number: GB-ROCHE-582763

PATIENT
  Age: 32 Year
  Sex: Female

DRUGS (1)
  1. XELODA [Suspect]
     Dosage: ENTERED AS 1GRAM/M2. 14 DAY CYCLES.
     Route: 048
     Dates: start: 20080801

REACTIONS (1)
  - DISSEMINATED INTRAVASCULAR COAGULATION [None]
